FAERS Safety Report 6381514-4 (Version None)
Quarter: 2009Q3

REPORT INFORMATION
  Report Type: 
  Country: None (occurrence: None)
  Receive Date: 20090925
  Receipt Date: 20090911
  Transmission Date: 20100115
  Serious: Yes (Disabling)
  Sender: FDA-Public Use
  Company Number: VAL_00314_2009

PATIENT
  Sex: Female

DRUGS (4)
  1. ROCALTROL [Suspect]
     Indication: DRUG USE FOR UNKNOWN INDICATION
     Dosage: DF, ONE UNSPECIFIED DOSE FOR TWO TIMES);
  2. ZOLEDRONIC ACID [Suspect]
     Indication: DRUG USE FOR UNKNOWN INDICATION
     Dosage: DF
     Dates: start: 20090728
  3. ACETAMINOPHEN AND CODEINE PHOSPHATE [Concomitant]
  4. ACETAMINOPHEN [Concomitant]

REACTIONS (3)
  - CONDITION AGGRAVATED [None]
  - MALAISE [None]
  - MYALGIA [None]
